FAERS Safety Report 5310201-6 (Version None)
Quarter: 2007Q2

REPORT INFORMATION
  Report Type: 
  Country: None (occurrence: None)
  Receive Date: 20070427
  Receipt Date: 20070424
  Transmission Date: 20071010
  Serious: Yes (Hospitalization)
  Sender: FDA-Public Use
  Company Number: 2007UW03005

PATIENT
  Age: 21651 Day
  Sex: Female

DRUGS (13)
  1. TENORMIN [Suspect]
     Route: 048
     Dates: end: 20070101
  2. TENORMIN [Suspect]
     Route: 048
     Dates: start: 20070101
  3. REBIF [Suspect]
     Indication: MULTIPLE SCLEROSIS
     Dates: start: 20061006, end: 20070120
  4. REBIF [Suspect]
     Dates: start: 20070212, end: 20070201
  5. WARFARIN SODIUM [Concomitant]
  6. DITROPAN XL [Concomitant]
  7. TIZANIDINE HCL [Concomitant]
  8. CALTRATE PLUS [Concomitant]
  9. CENTRUM SILVER [Concomitant]
  10. FLONASE [Concomitant]
  11. FOSAMAX [Concomitant]
  12. IMITREX [Concomitant]
  13. ZETIA [Concomitant]

REACTIONS (4)
  - ATRIOVENTRICULAR BLOCK COMPLETE [None]
  - HYPERTENSION [None]
  - PAIN IN EXTREMITY [None]
  - SYNCOPE [None]
